FAERS Safety Report 7595497-2 (Version None)
Quarter: 2011Q3

REPORT INFORMATION
  Report Type: 
  Country: None (occurrence: None)
  Receive Date: 20110707
  Receipt Date: 20110628
  Transmission Date: 20111222
  Serious: Yes (Hospitalization)
  Sender: FDA-Public Use
  Company Number: DE-ELI_LILLY_AND_COMPANY-DE200905005767

PATIENT
  Sex: Male
  Weight: 82 kg

DRUGS (13)
  1. CISPLATIN [Suspect]
     Indication: NON-SMALL CELL LUNG CANCER STAGE IV
     Dosage: 75 MG/M2, DAY 1 EVERY 21 DAYS
     Route: 042
     Dates: start: 20090504
  2. CORTICOSTEROID NOS [Concomitant]
     Indication: PROPHYLAXIS
     Dates: start: 20090525, end: 20090528
  3. ANTIHISTAMINES [Concomitant]
     Indication: PROPHYLAXIS
     Dates: start: 20090527, end: 20090527
  4. PANTOPRAZOLE [Concomitant]
     Indication: GASTRITIS PROPHYLAXIS
     Dosage: UNK, UNK
     Dates: start: 20090408
  5. METOCLOPRAMIDE [Concomitant]
     Indication: GASTRITIS PROPHYLAXIS
     Dates: start: 20090507
  6. PEMETREXED [Suspect]
     Indication: NON-SMALL CELL LUNG CANCER STAGE IV
     Dosage: 500 MG/M2, DAY 1 EVERY 21 DAYS
     Route: 042
     Dates: start: 20090504
  7. VITAMIN B-12 [Concomitant]
     Indication: PROPHYLAXIS
     Dosage: UNK, UNK
     Dates: start: 20090419, end: 20090512
  8. OXYGESIC [Concomitant]
     Indication: CHEST PAIN
     Dosage: UNK, UNK
     Dates: start: 20090418
  9. MOVIPREP [Concomitant]
     Indication: GASTRITIS PROPHYLAXIS
     Dates: start: 20090429
  10. FOLIC ACID [Concomitant]
     Indication: PROPHYLAXIS
     Dosage: UNK, UNK
     Dates: start: 20090418, end: 20090529
  11. CETUXIMAB [Suspect]
     Indication: NON-SMALL CELL LUNG CANCER STAGE IV
     Dosage: 400 MG/M2, DAY 1 CYCLE 1
     Route: 042
     Dates: start: 20090504
  12. IBUPROFEN [Concomitant]
     Indication: CHEST PAIN
     Dosage: UNK, UNK
     Dates: start: 20090409
  13. NOVAMINSULFON [Concomitant]
     Indication: CHEST PAIN
     Dosage: UNK, UNK
     Dates: start: 20090418

REACTIONS (3)
  - TUMOUR PAIN [None]
  - OBSTRUCTION [None]
  - CYTOKINE RELEASE SYNDROME [None]
